FAERS Safety Report 13463799 (Version 1)
Quarter: 2017Q2

REPORT INFORMATION
  Report Type: Spontaneous
  Country: US (occurrence: US)
  Receive Date: 20170420
  Receipt Date: 20170420
  Transmission Date: 20170830
  Serious: Yes (Other)
  Sender: FDA-Public Use
  Company Number: US-ROCHE-662542

PATIENT
  Age: 22 Year
  Sex: Male
  Weight: 74.8 kg

DRUGS (5)
  1. ACCUTANE [Suspect]
     Active Substance: ISOTRETINOIN
     Indication: ACNE
     Dosage: PATIENT RECEIVED ISOTRETINOIN FOR 6 MONTHS
     Route: 065
     Dates: start: 1992, end: 1993
  2. ACCUTANE [Suspect]
     Active Substance: ISOTRETINOIN
     Route: 065
  3. MINOCIN [Concomitant]
     Active Substance: MINOCYCLINE HYDROCHLORIDE
     Indication: ACNE
     Route: 065
  4. ACCUTANE [Suspect]
     Active Substance: ISOTRETINOIN
     Dosage: PATIENT RECEIVED ISOTRETINOIN FOR 6 MONTHS
     Route: 065
     Dates: start: 1996, end: 1997
  5. ACCUTANE [Suspect]
     Active Substance: ISOTRETINOIN
     Route: 065
     Dates: start: 20000626, end: 20000905

REACTIONS (4)
  - Inflammatory bowel disease [Unknown]
  - Gastric ulcer [Unknown]
  - Acne [Unknown]
  - Crohn^s disease [Unknown]

NARRATIVE: CASE EVENT DATE: 200001
